FAERS Safety Report 4267262-5 (Version None)
Quarter: 2004Q1

REPORT INFORMATION
  Report Type: 
  Country: None (occurrence: None)
  Receive Date: 20040107
  Receipt Date: 20031230
  Transmission Date: 20041129
  Serious: Yes (Other)
  Sender: FDA-Public Use
  Company Number: GBWYE487631DEC03

PATIENT
  Sex: Female

DRUGS (1)
  1. EFFEXOR XR [Suspect]
     Dosage: TITRATED UP TO 300MG (OVER 4 WEEKS)

REACTIONS (2)
  - DRUG WITHDRAWAL SYNDROME [None]
  - HYPERTENSION [None]
